FAERS Safety Report 18638438 (Version 2)
Quarter: 2021Q4

REPORT INFORMATION
  Report Type: Spontaneous
  Country: US (occurrence: US)
  Receive Date: 20201218
  Receipt Date: 20211214
  Transmission Date: 20220303
  Serious: Yes (Other)
  Sender: FDA-Public Use
  Company Number: US-REGENERON PHARMACEUTICALS, INC.-2020-87763

PATIENT

DRUGS (2)
  1. EYLEA [Suspect]
     Active Substance: AFLIBERCEPT
     Indication: Diabetic retinopathy
     Dosage: 2 MG, LEFT EYE, 1 DOSE PRIOR TO CATARACT SURGERY TO CLEAN UP THE BLEEDING IN THE EYE
     Route: 031
     Dates: start: 20201106
  2. EYLEA [Suspect]
     Active Substance: AFLIBERCEPT
     Indication: Vitreous haemorrhage

REACTIONS (4)
  - Cataract [Unknown]
  - Vitrectomy [Unknown]
  - Off label use [Unknown]
  - Drug ineffective [Not Recovered/Not Resolved]

NARRATIVE: CASE EVENT DATE: 20201106
